FAERS Safety Report 7293120-8 (Version None)
Quarter: 2011Q1

REPORT INFORMATION
  Report Type: 
  Country: None (occurrence: None)
  Receive Date: 20110215
  Receipt Date: 20110203
  Transmission Date: 20110831
  Serious: Yes (Hospitalization)
  Sender: FDA-Public Use
  Company Number: IL-SANOFI-AVENTIS-2011SA007600

PATIENT
  Age: 41 Year
  Sex: Female

DRUGS (3)
  1. BISOPROLOL [Concomitant]
  2. MULTAQ [Suspect]
     Indication: ATRIAL FIBRILLATION
     Route: 048
  3. DIURETICS [Concomitant]

REACTIONS (1)
  - PULMONARY OEDEMA [None]
